FAERS Safety Report 5220748-9 (Version None)
Quarter: 2007Q1

REPORT INFORMATION
  Report Type: 
  Country: None (occurrence: None)
  Receive Date: 20070125
  Receipt Date: 20070125
  Transmission Date: 20070707
  Serious: Yes (Hospitalization)
  Sender: FDA-Public Use
  Company Number: None

PATIENT
  Sex: Female
  Weight: 107.9561 kg

DRUGS (9)
  1. ALEVE [Suspect]
     Indication: ARTHRITIS
     Dosage: PO
     Route: 048
  2. THEOPHYLLINE [Concomitant]
  3. DIOVAN [Concomitant]
  4. RANITIDINE [Concomitant]
  5. METFORMIN HCL [Concomitant]
  6. LASIX [Concomitant]
  7. SINGULAIR [Concomitant]
  8. FLOVENT [Concomitant]
  9. INSULIN [Concomitant]

REACTIONS (3)
  - DRUG HYPERSENSITIVITY [None]
  - DYSPNOEA [None]
  - URTICARIA [None]
